FAERS Safety Report 19975539 (Version 1)
Quarter: 2021Q4

REPORT INFORMATION
  Report Type: Spontaneous
  Country: US (occurrence: US)
  Receive Date: 20211020
  Receipt Date: 20211020
  Transmission Date: 20220303
  Serious: No
  Sender: FDA-Public Use
  Company Number: US-NESTLEHEALTHSCIENCE-2021000067

PATIENT
  Age: 91 Year
  Sex: Male
  Weight: 71.21 kg

DRUGS (19)
  1. ZENPEP [Suspect]
     Active Substance: PANCRELIPASE AMYLASE\PANCRELIPASE LIPASE\PANCRELIPASE PROTEASE
     Dosage: STARTED SAMPLES TWO WEEKS AGO
  2. ZENPEP [Suspect]
     Active Substance: PANCRELIPASE AMYLASE\PANCRELIPASE LIPASE\PANCRELIPASE PROTEASE
     Dosage: FU RECEIVED ON 26-AUG??TAKE 1 CAPSULE ORALLY UP TO 6 TIMES EVERY DAY WITH MEALS AND WITH SNACK.
     Route: 048
     Dates: start: 20210615
  3. ATORVASTATIN [Concomitant]
     Active Substance: ATORVASTATIN
     Dosage: 1 TABLET BY ORAL ROUTE EVERYDAY
     Route: 048
  4. CARVEDILOL [Concomitant]
     Active Substance: CARVEDILOL
     Dosage: 1 TABLET BY ORAL ROUTE 2 TIMES EVERYDAY WITH FOOD
     Route: 048
  5. ASPIRIN [Concomitant]
     Active Substance: ASPIRIN
     Dosage: 1 TABLET BY ORAL ROUTE EVERYDAY
     Route: 048
  6. vitamin D3, 1000 unit capsule [Concomitant]
     Dosage: 1 CAPSULE EVERYDAY BY ORAL ROUTE
     Route: 048
  7. MELOXICAM [Concomitant]
     Active Substance: MELOXICAM
     Dosage: 1 TABLET BY ORAL ROUTE EVERYDAY
     Route: 048
  8. DEXILANT [Concomitant]
     Active Substance: DEXLANSOPRAZOLE
     Dosage: 1 CAPSULE DAILY
  9. LINZESS [Concomitant]
     Active Substance: LINACLOTIDE
     Dosage: ONE CAPSULE ORALLY EVERYDAY ON EMPTY STOMACH.
     Route: 048
  10. LISINOPRIL [Concomitant]
     Active Substance: LISINOPRIL
     Dosage: 1 TABLET BY ORAL ROUTE EVERYDAY
     Route: 048
  11. ALFUZOSIN [Concomitant]
     Active Substance: ALFUZOSIN
     Dosage: 1 TABLET BY ORAL ROUTE EVERYDAY
     Route: 048
  12. CLOPIDOGREL [Concomitant]
     Active Substance: CLOPIDOGREL BISULFATE
     Dosage: 1 TABLET BY ORAL ROUTE EVERYDAY
     Route: 048
  13. ELIQUIS [Concomitant]
     Active Substance: APIXABAN
     Dosage: 1 TABLET BY ORAL ROUTE 2 TIMES EVERYDAY.
     Route: 048
  14. SYNTHROID [Concomitant]
     Active Substance: LEVOTHYROXINE SODIUM
     Dosage: 1 TABLET BY ORAL ROUTE EVERYDAY
     Route: 048
  15. LORAZEPAM [Concomitant]
     Active Substance: LORAZEPAM
     Dosage: 1.5 TABLET BY ORALLY IN EVENING AS NEEDED
     Route: 048
  16. NITROGLYCERIN [Concomitant]
     Active Substance: NITROGLYCERIN
     Dosage: ONE TABLET SUBLINGUALLY AT FIRST SIGN OF ATTACK; REPEAT EVERY 5 MINS UNTIL RELIEF.
     Route: 060
  17. SPIRIVA RESPIMAT [Concomitant]
     Active Substance: TIOTROPIUM BROMIDE
     Dosage: 2 PUFFS PER DAY
     Route: 045
  18. LYRICA [Concomitant]
     Active Substance: PREGABALIN
     Dosage: ONE CAPSULE ORALLY PER DAY
     Route: 048
  19. REGLAN [Concomitant]
     Active Substance: METOCLOPRAMIDE HYDROCHLORIDE
     Dosage: 1 TABLET 3 TIMES A DAY
     Route: 048

REACTIONS (2)
  - Drug ineffective [Recovering/Resolving]
  - No adverse event [Unknown]
